FAERS Safety Report 4437826-4 (Version None)
Quarter: 2004Q3

REPORT INFORMATION
  Report Type: 
  Country: None (occurrence: None)
  Receive Date: 20040831
  Receipt Date: 20040810
  Transmission Date: 20050211
  Serious: Yes (Hospitalization, Other)
  Sender: FDA-Public Use
  Company Number: US-AMGEN-US086637

PATIENT
  Sex: Male
  Weight: 51.8 kg

DRUGS (6)
  1. EPOGEN [Suspect]
     Indication: DIALYSIS
     Route: 042
     Dates: start: 20031101
  2. NEPHRO-VITE [Concomitant]
     Dates: start: 20030416
  3. ZOLOFT [Concomitant]
     Dates: start: 20040723
  4. HUMULIN 70/30 [Concomitant]
     Dates: start: 20040728
  5. INSULIN [Concomitant]
     Dates: start: 20040728
  6. NEUPOGEN [Concomitant]
     Dates: start: 20040501

REACTIONS (4)
  - BLOOD IRON INCREASED [None]
  - BONE MARROW DEPRESSION [None]
  - INFECTION [None]
  - THERAPEUTIC RESPONSE DECREASED [None]
